FAERS Safety Report 16941928 (Version 1)
Quarter: 2019Q4

REPORT INFORMATION
  Report Type: Spontaneous
  Country: US (occurrence: US)
  Receive Date: 20191021
  Receipt Date: 20191021
  Transmission Date: 20200122
  Serious: Yes (Other)
  Sender: FDA-Public Use
  Company Number: US-BAUSCH-BL-2019-057350

PATIENT
  Sex: Female

DRUGS (4)
  1. LIALDA [Concomitant]
     Active Substance: MESALAMINE
     Indication: COLITIS ULCERATIVE
     Route: 048
  2. UCERIS [Suspect]
     Active Substance: BUDESONIDE
     Indication: COLITIS ULCERATIVE
     Dosage: 1 APPLICATORFUL RECTALLY TWICE DAILY FOR 14 DAYS, THEN 1 APPLICATORFUL NIGHTLY FOR 28 DAYS
     Route: 054
     Dates: start: 201909, end: 2019
  3. UCERIS [Suspect]
     Active Substance: BUDESONIDE
     Dosage: 1 APPLICATORFUL RECTALLY TWICE DAILY FOR 14 DAYS, THEN 1 APPLICATORFUL NIGHTLY FOR 28 DAYS
     Route: 054
     Dates: start: 2019
  4. LIALDA [Concomitant]
     Active Substance: MESALAMINE
     Dosage: DOSE INCREASED
     Route: 048

REACTIONS (1)
  - Drug ineffective [Unknown]

NARRATIVE: CASE EVENT DATE: 2019
